FAERS Safety Report 10386353 (Version 4)
Quarter: 2015Q1

REPORT INFORMATION
  Report Type: Report from Study
  Country: US (occurrence: US)
  Receive Date: 20140815
  Receipt Date: 20150218
  Transmission Date: 20150720
  Serious: Yes (Other)
  Sender: FDA-Public Use
  Company Number: US-BIOGENIDEC-2012BI061853

PATIENT
  Sex: Female

DRUGS (2)
  1. AVONEX [Suspect]
     Active Substance: INTERFERON BETA-1A
     Indication: MULTIPLE SCLEROSIS
     Route: 030
     Dates: start: 20061026, end: 201408
  2. AVONEX [Suspect]
     Active Substance: INTERFERON BETA-1A
     Indication: MULTIPLE SCLEROSIS
     Route: 030

REACTIONS (14)
  - Cardiac disorder [Not Recovered/Not Resolved]
  - Nasal congestion [Unknown]
  - Haemorrhagic diathesis [Unknown]
  - Musculoskeletal stiffness [Not Recovered/Not Resolved]
  - Headache [Unknown]
  - Cataract [Unknown]
  - Upper respiratory tract infection [Unknown]
  - Macular hole [Not Recovered/Not Resolved]
  - Influenza like illness [Recovered/Resolved]
  - Pain [Unknown]
  - Multiple sclerosis [Unknown]
  - Injection site scar [Unknown]
  - Malaise [Unknown]
  - Injection site reaction [Recovered/Resolved]
